FAERS Safety Report 10027826 (Version 1)
Quarter: 2014Q1

REPORT INFORMATION
  Report Type: Spontaneous
  Country: US (occurrence: US)
  Receive Date: 20140321
  Receipt Date: 20140321
  Transmission Date: 20141002
  Serious: Yes (Other)
  Sender: FDA-Public Use
  Company Number: US-BAYER-2014-037644

PATIENT
  Age: 71 Year
  Sex: Male

DRUGS (2)
  1. ACETYLSALICYLIC ACID (} 100 MG) [Suspect]
     Indication: IMMUNE TOLERANCE INDUCTION
     Dosage: 162 MG, ONCE
     Route: 048
  2. ACETYLSALICYLIC ACID (} 100 MG) [Suspect]
     Indication: IMMUNE TOLERANCE INDUCTION
     Dosage: UNK (40 YEARS AGO)

REACTIONS (2)
  - Angioedema [None]
  - Angioedema [Recovered/Resolved]
